FAERS Safety Report 8796023 (Version 1)
Quarter: 2012Q4

REPORT INFORMATION
  Report Type: 
  Country: BR (occurrence: BR)
  Receive Date: 20120919
  Receipt Date: 20120919
  Transmission Date: 20130627
  Serious: Yes (Other)
  Sender: FDA-Public Use
  Company Number: BR-ASTRAZENECA-2012SE71798

PATIENT
  Age: 54 Year
  Sex: Male

DRUGS (3)
  1. BRILINTA [Suspect]
     Indication: INFARCTION
     Route: 048
  2. HEPARINE [Concomitant]
  3. ASA [Concomitant]
     Route: 048

REACTIONS (1)
  - Thrombocytopenia [Recovering/Resolving]
